FAERS Safety Report 6801257-X (Version None)
Quarter: 2010Q2

REPORT INFORMATION
  Report Type: 
  Country: None (occurrence: None)
  Receive Date: 20100629
  Receipt Date: 20100624
  Transmission Date: 20101027
  Serious: Yes (Other)
  Sender: FDA-Public Use
  Company Number: A0866893A

PATIENT
  Age: 55 Year
  Sex: Female

DRUGS (5)
  1. TAGAMET HB 200 [Suspect]
  2. NEUTROGENA [Suspect]
     Indication: DRUG USE FOR UNKNOWN INDICATION
  3. PROTONIX [Concomitant]
  4. PREDNISONE [Concomitant]
  5. ALBUTEROL [Concomitant]

REACTIONS (11)
  - ASTHMA [None]
  - BLISTER [None]
  - BURNING SENSATION [None]
  - CONDITION AGGRAVATED [None]
  - DRUG INTERACTION [None]
  - DRY MOUTH [None]
  - HYPERSENSITIVITY [None]
  - NEURALGIA [None]
  - NEUROPATHY PERIPHERAL [None]
  - SWELLING [None]
  - URTICARIA [None]
